FAERS Safety Report 4277682-0 (Version None)
Quarter: 2004Q1

REPORT INFORMATION
  Report Type: 
  Country: None (occurrence: None)
  Receive Date: 20040121
  Receipt Date: 20031230
  Transmission Date: 20041129
  Serious: Yes (Hospitalization)
  Sender: FDA-Public Use
  Company Number: GBS031214220

PATIENT
  Age: 65 Year
  Sex: Female

DRUGS (2)
  1. GEMZAR [Suspect]
     Indication: NON-SMALL CELL LUNG CANCER
     Dosage: 2400 MG/M2/ 2 OTHER
     Route: 050
  2. CARBOPLATIN [Concomitant]

REACTIONS (6)
  - INFARCTION [None]
  - MICROANGIOPATHY [None]
  - PAIN IN EXTREMITY [None]
  - PERIPHERAL COLDNESS [None]
  - PULSE ABSENT [None]
  - SKIN DISCOLOURATION [None]
